FAERS Safety Report 8575405-8 (Version None)
Quarter: 2012Q3

REPORT INFORMATION
  Report Type: 
  Country: None (occurrence: None)
  Receive Date: 20120807
  Receipt Date: 20120805
  Transmission Date: 20120928
  Serious: No
  Sender: FDA-Public Use
  Company Number: US-PFIZER INC-2012190562

PATIENT
  Age: 66 Year
  Sex: Male
  Weight: 45.351 kg

DRUGS (1)
  1. SUTENT [Suspect]
     Indication: LUNG CARCINOMA CELL TYPE UNSPECIFIED STAGE IV
     Dosage: 50 MG DAILY
     Route: 048
     Dates: start: 20120201

REACTIONS (1)
  - ERYTHEMA [None]
